FAERS Safety Report 7877662-X (Version None)
Quarter: 2011Q4

REPORT INFORMATION
  Report Type: 
  Country: None (occurrence: None)
  Receive Date: 20111031
  Receipt Date: 20111031
  Transmission Date: 20120403
  Serious: Yes (Hospitalization)
  Sender: FDA-Public Use
  Company Number: None

PATIENT
  Age: 90 Year
  Sex: Female

DRUGS (14)
  1. FLORANEX ORAL GRANULES [Concomitant]
     Route: 048
  2. ASPIRIN [Concomitant]
     Indication: CORONARY ARTERY DISEASE
     Dosage: 81 MG
     Route: 048
  3. MULTI-VITAMIN [Concomitant]
     Route: 048
  4. SEROQUEL [Concomitant]
     Route: 048
  5. SENNA [Concomitant]
     Route: 048
  6. TOPROL-XL [Concomitant]
     Route: 048
  7. SEROQUEL [Concomitant]
     Route: 048
  8. TYLENOL-500 [Concomitant]
     Route: 048
  9. MIRTAZAPINE [Concomitant]
     Route: 048
  10. FENTANYL-100 [Concomitant]
     Route: 062
  11. COUMADIN [Suspect]
     Indication: THROMBOSIS PROPHYLAXIS
     Dosage: 5 MG
     Route: 048
     Dates: start: 20110701, end: 20110803
  12. COUMADIN [Suspect]
     Indication: HIP FRACTURE
     Dosage: 5 MG
     Route: 048
     Dates: start: 20110701, end: 20110803
  13. COUMADIN [Suspect]
     Indication: POSTOPERATIVE CARE
     Dosage: 5 MG
     Route: 048
     Dates: start: 20110701, end: 20110803
  14. VICODIN 5/325 MG [Concomitant]
     Route: 048

REACTIONS (3)
  - GASTROINTESTINAL HAEMORRHAGE [None]
  - HAEMOGLOBIN DECREASED [None]
  - INTERNATIONAL NORMALISED RATIO INCREASED [None]
